FAERS Safety Report 7378654-X (Version None)
Quarter: 2011Q1

REPORT INFORMATION
  Report Type: 
  Country: None (occurrence: None)
  Receive Date: 20110328
  Receipt Date: 20110318
  Transmission Date: 20110831
  Serious: Yes (Hospitalization, Disabling, Other)
  Sender: FDA-Public Use
  Company Number: US-PFIZER INC-2011060440

PATIENT
  Sex: Female
  Weight: 64.9 kg

DRUGS (13)
  1. VITAMIN B-12 [Concomitant]
     Dosage: UNK
     Dates: start: 20100916, end: 20101111
  2. PLAQUENIL [Concomitant]
     Dosage: 400 MG, 1X/DAY
     Route: 048
  3. ACIPHEX [Concomitant]
     Indication: GASTROOESOPHAGEAL REFLUX DISEASE
     Dosage: 20 MG, 1X/DAY
     Route: 048
  4. MOTRIN [Concomitant]
     Indication: ALLERGIC SINUSITIS
     Dosage: 800 MG, AS NEEDED
     Route: 048
  5. PREDNISONE [Concomitant]
     Indication: SYSTEMIC LUPUS ERYTHEMATOSUS
     Dosage: 10 MG, 1X/DAY
  6. DEPO-PROVERA [Suspect]
     Indication: DYSMENORRHOEA
  7. CALCIUM WITH VITAMIN D [Concomitant]
     Dosage: 2 DF, 1X/DAY
     Route: 048
  8. DEPO-PROVERA [Suspect]
     Indication: OFF LABEL USE
     Dosage: 150 MG, EVERY 3 MONTHS
     Route: 030
     Dates: start: 20080220, end: 20101115
  9. METHOTREXATE [Concomitant]
     Indication: SYSTEMIC LUPUS ERYTHEMATOSUS
     Dosage: 20 MG, WEEKLY
     Route: 048
  10. ASCORBIC ACID [Concomitant]
     Dosage: 500 MG, 1X/DAY
     Route: 048
  11. FOLIC ACID [Concomitant]
     Indication: SYSTEMIC LUPUS ERYTHEMATOSUS
     Dosage: 2 MG, 1X/DAY
     Route: 048
  12. ACETYLSALICYLIC ACID [Concomitant]
     Dosage: 81 MG, 1X/DAY
     Route: 048
  13. LORATADINE [Concomitant]
     Indication: ALLERGIC SINUSITIS
     Dosage: 10 MG, 1X/DAY
     Route: 048

REACTIONS (7)
  - HYPOAESTHESIA [None]
  - PAIN IN EXTREMITY [None]
  - LIMB DISCOMFORT [None]
  - INJECTION SITE MOVEMENT IMPAIRMENT [None]
  - OSTEOPENIA [None]
  - WEIGHT INCREASED [None]
  - OEDEMA PERIPHERAL [None]
